FAERS Safety Report 14598154 (Version 3)
Quarter: 2018Q3

REPORT INFORMATION
  Report Type: Spontaneous
  Country: US (occurrence: US)
  Receive Date: 20180305
  Receipt Date: 20180709
  Transmission Date: 20181010
  Serious: Yes (Other)
  Sender: FDA-Public Use
  Company Number: PHEH2018US007933

PATIENT
  Age: 67 Year
  Sex: Female
  Weight: 65.1 kg

DRUGS (3)
  1. GLEEVEC [Suspect]
     Active Substance: IMATINIB MESYLATE
     Indication: GASTROINTESTINAL STROMAL TUMOUR
     Dosage: 400 MG, QD
     Route: 065
  2. LASIX [Concomitant]
     Active Substance: FUROSEMIDE
     Indication: PRODUCT USED FOR UNKNOWN INDICATION
     Route: 065
  3. GLEEVEC [Suspect]
     Active Substance: IMATINIB MESYLATE
     Dosage: 300 MG, QD
     Route: 048

REACTIONS (31)
  - Dyspnoea [Recovered/Resolved]
  - Dumping syndrome [Unknown]
  - Oesophageal discomfort [Unknown]
  - Palpitations [Unknown]
  - Gait inability [Unknown]
  - Dehydration [Unknown]
  - Peripheral swelling [Unknown]
  - Vomiting [Unknown]
  - Cardiac dysfunction [Unknown]
  - Pericardial effusion [Recovered/Resolved]
  - Urine odour abnormal [Unknown]
  - Early satiety [Unknown]
  - Diarrhoea [Unknown]
  - Pain [Unknown]
  - Insomnia [Unknown]
  - Fluid retention [Unknown]
  - Gastrointestinal haemorrhage [Recovered/Resolved]
  - Abdominal rigidity [Recovered/Resolved]
  - Fatigue [Not Recovered/Not Resolved]
  - Haemarthrosis [Unknown]
  - Bone marrow failure [Unknown]
  - Joint swelling [Recovered/Resolved]
  - Dyspnoea paroxysmal nocturnal [Unknown]
  - Chromaturia [Unknown]
  - Arthralgia [Unknown]
  - Laceration [Unknown]
  - Tachycardia [Unknown]
  - Dysgeusia [Unknown]
  - Oedema peripheral [Unknown]
  - Depression [Unknown]
  - Constipation [Unknown]

NARRATIVE: CASE EVENT DATE: 20180222
